FAERS Safety Report 5169321-1 (Version None)
Quarter: 2006Q4

REPORT INFORMATION
  Report Type: 
  Country: None (occurrence: None)
  Receive Date: 20061201
  Receipt Date: 20060927
  Transmission Date: 20070319
  Serious: Yes (Other)
  Sender: FDA-Public Use
  Company Number: 2006119266

PATIENT
  Sex: Female

DRUGS (1)
  1. REGAINE            (MINOXIDIL) [Suspect]
     Dosage: TOPICAL
     Route: 061
     Dates: start: 20060901, end: 20060901

REACTIONS (1)
  - DRUG HYPERSENSITIVITY [None]
